FAERS Safety Report 5104399-2 (Version None)
Quarter: 2006Q3

REPORT INFORMATION
  Report Type: 
  Country: None (occurrence: None)
  Receive Date: 20060914
  Receipt Date: 20060830
  Transmission Date: 20061208
  Serious: Yes (Hospitalization)
  Sender: FDA-Public Use
  Company Number: HQWYE154130AUG06

PATIENT
  Sex: Female

DRUGS (4)
  1. ENBREL [Suspect]
     Indication: RHEUMATOID ARTHRITIS
     Route: 058
     Dates: start: 20051012
  2. ACTONEL [Concomitant]
     Dosage: UNSPECIFIED
  3. PREDONINE [Concomitant]
     Dosage: UNSPECIFIED
     Route: 048
  4. INSULIN [Concomitant]
     Dosage: UNSPECIFIED
     Route: 042

REACTIONS (1)
  - CENTRAL NERVOUS SYSTEM LESION [None]
